FAERS Safety Report 6162571-7 (Version None)
Quarter: 2009Q2

REPORT INFORMATION
  Report Type: 
  Country: None (occurrence: None)
  Receive Date: 20090421
  Receipt Date: 20080708
  Transmission Date: 20091009
  Serious: No
  Sender: FDA-Public Use
  Company Number: US-ASTRAZENECA-2004UW03915

PATIENT
  Age: 61 Year
  Sex: Female
  Weight: 63.5 kg

DRUGS (12)
  1. CRESTOR [Suspect]
     Indication: BLOOD CHOLESTEROL INCREASED
     Route: 048
     Dates: start: 20040302
  2. CRESTOR [Suspect]
     Dosage: 1 TABLET OF 2.5 MG CRESTOR
     Route: 048
     Dates: start: 20071016
  3. CRESTOR [Suspect]
     Route: 048
     Dates: start: 20080703
  4. ZELNORM [Concomitant]
  5. AMITRIPTLINE HYDROCHLORIDE TAB [Concomitant]
  6. PLAVIX [Concomitant]
  7. ASPIRIN [Concomitant]
  8. PREVACID [Concomitant]
  9. ALTACE [Concomitant]
  10. TOPROL-XL [Concomitant]
  11. NORVASC [Concomitant]
  12. COLACE [Concomitant]

REACTIONS (7)
  - ABDOMINAL PAIN UPPER [None]
  - EAR PAIN [None]
  - HEADACHE [None]
  - HOT FLUSH [None]
  - MYALGIA [None]
  - NAUSEA [None]
  - TINNITUS [None]
